FAERS Safety Report 18537009 (Version 3)
Quarter: 2020Q4

REPORT INFORMATION
  Report Type: Spontaneous
  Country: JP (occurrence: JP)
  Receive Date: 20201124
  Receipt Date: 20201223
  Transmission Date: 20210114
  Serious: Yes (Hospitalization, Other)
  Sender: FDA-Public Use
  Company Number: JP-009507513-2011JPN002579J

PATIENT
  Age: 67 Year
  Sex: Male
  Weight: 46 kg

DRUGS (3)
  1. BRIDION [Suspect]
     Active Substance: SUGAMMADEX
     Indication: NEUROMUSCULAR BLOCKADE REVERSAL
     Dosage: 200 MILLIGRAM
     Route: 042
     Dates: start: 202011
  2. ROCURONIUM BROMIDE. [Concomitant]
     Active Substance: ROCURONIUM BROMIDE
     Dosage: 100 MILLIGRAM
     Route: 065
     Dates: start: 202011
  3. SEVOFLURANE. [Concomitant]
     Active Substance: SEVOFLURANE
     Dosage: 1 PERCENT
     Route: 055
     Dates: start: 202011

REACTIONS (6)
  - Cardiac arrest [Recovered/Resolved]
  - Off label use [Unknown]
  - Respiratory arrest [Recovered/Resolved]
  - Intentional underdose [Unknown]
  - Recurrence of neuromuscular blockade [Recovered/Resolved]
  - Respiratory acidosis [Recovered/Resolved]

NARRATIVE: CASE EVENT DATE: 202011
